FAERS Safety Report 7862783-8 (Version None)
Quarter: 2011Q4

REPORT INFORMATION
  Report Type: 
  Country: None (occurrence: None)
  Receive Date: 20111027
  Receipt Date: 20101115
  Transmission Date: 20120403
  Serious: No
  Sender: FDA-Public Use
  Company Number: US-AMGEN-USASP2010004706

PATIENT
  Age: 51 Year
  Sex: Female

DRUGS (2)
  1. ENBREL [Suspect]
     Dosage: 50 MG, 2 TIMES/WK
     Route: 058
     Dates: start: 20101022
  2. LITHIUM CITRATE [Concomitant]

REACTIONS (11)
  - RHINORRHOEA [None]
  - ANTIPSYCHOTIC DRUG LEVEL BELOW THERAPEUTIC [None]
  - PAIN [None]
  - INJECTION SITE PAIN [None]
  - SINUSITIS [None]
  - FATIGUE [None]
  - INJECTION SITE HAEMATOMA [None]
  - URINARY TRACT INFECTION [None]
  - MYALGIA [None]
  - COUGH [None]
  - THERAPEUTIC RESPONSE DECREASED [None]
